FAERS Safety Report 20565143 (Version 1)
Quarter: 2022Q1

REPORT INFORMATION
  Report Type: Spontaneous
  Country: IT (occurrence: IT)
  Receive Date: 20220308
  Receipt Date: 20220308
  Transmission Date: 20220423
  Serious: Yes (Hospitalization)
  Sender: FDA-Public Use
  Company Number: None

PATIENT
  Age: 6 Year
  Weight: 21 kg

DRUGS (1)
  1. PRIVIGEN [Suspect]
     Active Substance: HUMAN IMMUNOGLOBULIN G
     Indication: Platelet count decreased
     Route: 042

REACTIONS (5)
  - Retching [Recovering/Resolving]
  - Headache [Recovering/Resolving]
  - Thrombocytopenia [Recovering/Resolving]
  - No adverse event [Unknown]
  - Off label use [Unknown]
